FAERS Safety Report 13037120 (Version 1)
Quarter: 2016Q4

REPORT INFORMATION
  Report Type: Spontaneous
  Country: FR (occurrence: FR)
  Receive Date: 20161216
  Receipt Date: 20161216
  Transmission Date: 20170207
  Serious: Yes (Death, Other)
  Sender: FDA-Public Use
  Company Number: FR-BAXTER-2016BAX062323

PATIENT
  Age: 59 Year
  Sex: Male

DRUGS (3)
  1. ENDOXAN 1000 MG, POUDRE POUR SOLUTION INJECTABLE [Suspect]
     Active Substance: CYCLOPHOSPHAMIDE
     Indication: GLOMERULONEPHRITIS
     Route: 040
     Dates: start: 2002, end: 2002
  2. CELLCEPT [Suspect]
     Active Substance: MYCOPHENOLATE MOFETIL\MYCOPHENOLATE MOFETIL HYDROCHLORIDE
     Indication: RENAL TRANSPLANT
     Route: 048
     Dates: start: 2005, end: 2005
  3. ENDOXAN 1000 MG, POUDRE POUR SOLUTION INJECTABLE [Suspect]
     Active Substance: CYCLOPHOSPHAMIDE
     Indication: OFF LABEL USE
     Route: 040
     Dates: start: 2002, end: 2002

REACTIONS (5)
  - Epstein-Barr virus associated lymphoma [Fatal]
  - Septic shock [Recovered/Resolved]
  - Central nervous system lymphoma [Fatal]
  - Urinary tract infection [Recovered/Resolved]
  - Infection [Fatal]

NARRATIVE: CASE EVENT DATE: 2006
